FAERS Safety Report 24402368 (Version 1)
Quarter: 2024Q4

REPORT INFORMATION
  Report Type: Spontaneous
  Country: BE (occurrence: BE)
  Receive Date: 20241007
  Receipt Date: 20241007
  Transmission Date: 20250115
  Serious: Yes (Other)
  Sender: ALKEM
  Company Number: BE-ALKEM LABORATORIES LIMITED-BE-ALKEM-2024-22718

PATIENT
  Age: 64 Year

DRUGS (2)
  1. PREGABALIN [Suspect]
     Active Substance: PREGABALIN
     Indication: Chronic inflammatory demyelinating polyradiculoneuropathy
     Dosage: 75 MILLIGRAM, QD
     Route: 065
  2. PREGABALIN [Suspect]
     Active Substance: PREGABALIN
     Dosage: 75 MILLIGRAM, BID
     Route: 065

REACTIONS (2)
  - Toxic encephalopathy [Recovered/Resolved]
  - Myoclonus [Recovered/Resolved]
